FAERS Safety Report 4695662-8 (Version None)
Quarter: 2005Q2

REPORT INFORMATION
  Report Type: 
  Country: None (occurrence: None)
  Receive Date: 20050617
  Receipt Date: 20050617
  Transmission Date: 20051028
  Serious: Yes (Death, Congenital Anomaly)
  Sender: FDA-Public Use
  Company Number: None

PATIENT
  Sex: Female

DRUGS (2)
  1. NEURONTIN [Suspect]
     Indication: CYCLOTHYMIC DISORDER
     Dosage: 200 MG P.O. BID    (DURATION: YEARS)
     Route: 048
  2. PRENATAL MULTIVITAMINS [Concomitant]

REACTIONS (8)
  - ABORTION INDUCED [None]
  - ALPHA 1 FOETOPROTEIN INCREASED [None]
  - AMNIOTIC BAND SYNDROME [None]
  - CONGENITAL ANOMALY [None]
  - CONGENITAL FOOT MALFORMATION [None]
  - GASTROSCHISIS [None]
  - LOWER LIMB DEFORMITY [None]
  - MATERNAL DRUGS AFFECTING FOETUS [None]
